FAERS Safety Report 9289045 (Version 1)
Quarter: 2013Q2

REPORT INFORMATION
  Report Type: Spontaneous
  Country: US (occurrence: US)
  Receive Date: 20130514
  Receipt Date: 20130514
  Transmission Date: 20140414
  Serious: No
  Sender: FDA-Public Use
  Company Number: US-PFIZER INC-2013146800

PATIENT
  Sex: Male

DRUGS (6)
  1. FLECTOR [Suspect]
     Indication: ARTHRALGIA
     Dosage: UNK
  2. FLECTOR [Suspect]
     Indication: RHEUMATOID ARTHRITIS
  3. FLECTOR [Suspect]
     Indication: ARTHRALGIA
  4. FLECTOR [Suspect]
     Indication: BACK PAIN
  5. FLECTOR [Suspect]
     Indication: MUSCULOSKELETAL PAIN
  6. FLECTOR [Suspect]
     Indication: PAIN

REACTIONS (2)
  - Skin irritation [Unknown]
  - Off label use [Unknown]
